FAERS Safety Report 5911625-6 (Version None)
Quarter: 2008Q4

REPORT INFORMATION
  Report Type: 
  Country: None (occurrence: None)
  Receive Date: 20081003
  Receipt Date: 20080919
  Transmission Date: 20090506
  Serious: Yes (Hospitalization)
  Sender: FDA-Public Use
  Company Number: 230201K07USA

PATIENT
  Age: 58 Year
  Sex: Male

DRUGS (1)
  1. REBIF [Suspect]
     Indication: MULTIPLE SCLEROSIS
     Dosage: 44 MCG, 3 IN 1 WEEKS, SUBCUTANEOUS
     Route: 058
     Dates: start: 20050708, end: 20070809

REACTIONS (5)
  - CYSTITIS BACTERIAL [None]
  - DEHYDRATION [None]
  - DRUG INEFFECTIVE [None]
  - NEPHROLITHIASIS [None]
  - URINARY RETENTION [None]
